FAERS Safety Report 13608000 (Version 2)
Quarter: 2021Q1

REPORT INFORMATION
  Report Type: Spontaneous
  Country: US (occurrence: US)
  Receive Date: 20170602
  Receipt Date: 20210211
  Transmission Date: 20210419
  Serious: No
  Sender: FDA-Public Use
  Company Number: US-ELI_LILLY_AND_COMPANY-US201705006264

PATIENT
  Age: 13 Year
  Sex: Male

DRUGS (3)
  1. HUMATROPE [Suspect]
     Active Substance: SOMATROPIN
     Dosage: 1.9 MG, X7 WEEK
     Route: 065
  2. HUMATROPE [Suspect]
     Active Substance: SOMATROPIN
     Dosage: 1.9 MG, X7 WEEK
     Route: 065
  3. HUMATROPE [Suspect]
     Active Substance: SOMATROPIN
     Indication: SHORT STATURE
     Dosage: 6 MG, UNKNOWN
     Route: 058
     Dates: start: 20170515

REACTIONS (3)
  - Constipation [Unknown]
  - Injection site mass [Recovering/Resolving]
  - Tension [Recovered/Resolved]

NARRATIVE: CASE EVENT DATE: 20170515
